FAERS Safety Report 16556866 (Version 2)
Quarter: 2020Q2

REPORT INFORMATION
  Report Type: Spontaneous
  Country: US (occurrence: US)
  Receive Date: 20190711
  Receipt Date: 20200604
  Transmission Date: 20200713
  Serious: No
  Sender: FDA-Public Use
  Company Number: US-TEVA-2019-US-1070763

PATIENT
  Sex: Female

DRUGS (1)
  1. ESTRADIOL. [Suspect]
     Active Substance: ESTRADIOL

REACTIONS (6)
  - Libido decreased [Unknown]
  - Blood oestrogen decreased [Unknown]
  - Skin exfoliation [Unknown]
  - Asthenia [Unknown]
  - Malaise [Unknown]
  - Alopecia [Unknown]
